FAERS Safety Report 7689578-2 (Version None)
Quarter: 2011Q3

REPORT INFORMATION
  Report Type: 
  Country: None (occurrence: None)
  Receive Date: 20110817
  Receipt Date: 20110805
  Transmission Date: 20111222
  Serious: Yes (Other)
  Sender: FDA-Public Use
  Company Number: US-ELI_LILLY_AND_COMPANY-US201108002935

PATIENT
  Age: 61 Year
  Sex: Female

DRUGS (4)
  1. CYMBALTA [Suspect]
     Indication: DEPRESSION
     Dosage: 30 MG, QD
  2. CYMBALTA [Suspect]
     Dosage: 120 MG, UNK
  3. CYMBALTA [Suspect]
     Dosage: 90 MG, QD
  4. CYMBALTA [Suspect]
     Dosage: 60 MG, QD

REACTIONS (16)
  - ASTHENIA [None]
  - CONFUSIONAL STATE [None]
  - RASH [None]
  - NASOPHARYNGITIS [None]
  - SPEECH DISORDER [None]
  - DEPRESSION [None]
  - AGITATION [None]
  - HYPERSENSITIVITY [None]
  - OSTEOMYELITIS [None]
  - ANGER [None]
  - INSOMNIA [None]
  - DYSPNOEA [None]
  - SWELLING FACE [None]
  - IRRITABILITY [None]
  - MALAISE [None]
  - BRONCHITIS [None]
